FAERS Safety Report 12104443 (Version 1)
Quarter: 2016Q1

REPORT INFORMATION
  Report Type: Spontaneous
  Country: US (occurrence: US)
  Receive Date: 20160223
  Receipt Date: 20160223
  Transmission Date: 20160526
  Serious: No
  Sender: FDA-Public Use
  Company Number: US-BAUSCH-BL-2015-000603

PATIENT
  Age: 33 Year
  Sex: Male

DRUGS (1)
  1. VIRAZOLE [Suspect]
     Active Substance: RIBAVIRIN
     Indication: LUNG TRANSPLANT
     Dates: start: 20141217, end: 20141222

REACTIONS (2)
  - No adverse event [Unknown]
  - Drug administration error [Unknown]

NARRATIVE: CASE EVENT DATE: 20141217
